FAERS Safety Report 13900971 (Version 1)
Quarter: 2017Q3

REPORT INFORMATION
  Report Type: Spontaneous
  Country: ES (occurrence: ES)
  Receive Date: 20170824
  Receipt Date: 20170824
  Transmission Date: 20171127
  Serious: Yes (Other)
  Sender: FDA-Public Use
  Company Number: ES-APOTEX-2017AP017264

PATIENT
  Age: 78 Year
  Sex: Male

DRUGS (2)
  1. AZITROMICINA APOTEX COMPRIMIDOS RECUBIERTOS CON PELICULA EFG [Suspect]
     Active Substance: AZITHROMYCIN DIHYDRATE
     Indication: PNEUMONIA
     Route: 065
  2. AMOXI CLAV [Suspect]
     Active Substance: AMOXICILLIN\CLAVULANATE POTASSIUM
     Indication: PNEUMONIA
     Route: 065

REACTIONS (3)
  - Vestibular ataxia [Recovered/Resolved]
  - Ototoxicity [Recovered/Resolved]
  - Deafness neurosensory [Recovered/Resolved]
